FAERS Safety Report 11193299 (Version 1)
Quarter: 2015Q2

REPORT INFORMATION
  Report Type: Spontaneous
  Country: US (occurrence: None)
  Receive Date: 20150615
  Receipt Date: 20150615
  Transmission Date: 20150821
  Serious: Yes (Hospitalization)
  Sender: FDA-Public Use
  Company Number: None

PATIENT
  Age: 81 Year
  Sex: Male
  Weight: 82.4 kg

DRUGS (13)
  1. GABAPENTIN. [Concomitant]
     Active Substance: GABAPENTIN
  2. HUMALOG [Concomitant]
     Active Substance: INSULIN LISPRO
  3. PRAVASTATIN [Concomitant]
     Active Substance: PRAVASTATIN\PRAVASTATIN SODIUM
  4. TAMSULOSIN [Concomitant]
     Active Substance: TAMSULOSIN
  5. AMLODIPINE [Concomitant]
     Active Substance: AMLODIPINE BESYLATE
  6. PHENYTOIN. [Concomitant]
     Active Substance: PHENYTOIN
  7. ASPIRIN. [Concomitant]
     Active Substance: ASPIRIN
  8. LISINOPRIL, 40MG [Suspect]
     Active Substance: LISINOPRIL
     Indication: HYPERTENSION
     Route: 048
  9. CARVEDILOL. [Concomitant]
     Active Substance: CARVEDILOL
  10. SODIUM BICARBONATE. [Concomitant]
     Active Substance: SODIUM BICARBONATE
  11. NPH INSULIN [Concomitant]
     Active Substance: INSULIN BEEF
  12. HYDRALAZINE [Concomitant]
     Active Substance: HYDRALAZINE HYDROCHLORIDE
  13. MINOXIDIL. [Concomitant]
     Active Substance: MINOXIDIL

REACTIONS (5)
  - Dyspnoea [None]
  - Respiratory tract oedema [None]
  - Swelling face [None]
  - Protrusion tongue [None]
  - Swollen tongue [None]

NARRATIVE: CASE EVENT DATE: 20150111
